FAERS Safety Report 5800485-X (Version None)
Quarter: 2008Q3

REPORT INFORMATION
  Report Type: 
  Country: None (occurrence: None)
  Receive Date: 20080703
  Receipt Date: 20080627
  Transmission Date: 20090109
  Serious: Yes (Hospitalization)
  Sender: FDA-Public Use
  Company Number: A0735890A

PATIENT
  Sex: Female

DRUGS (3)
  1. VALTREX [Suspect]
     Dosage: 2CAPL TWICE PER DAY
     Route: 048
     Dates: start: 20080615, end: 20080615
  2. ACYCLOVIR SODIUM [Suspect]
     Indication: DRUG USE FOR UNKNOWN INDICATION
     Route: 065
  3. UNSPECIFIED MEDICATIONS [Concomitant]

REACTIONS (3)
  - ARTHRALGIA [None]
  - BLOOD CREATININE INCREASED [None]
  - RENAL FAILURE [None]
